FAERS Safety Report 17916668 (Version 2)
Quarter: 2020Q2

REPORT INFORMATION
  Report Type: Report from Study
  Country: NL (occurrence: NL)
  Receive Date: 20200619
  Receipt Date: 20200623
  Transmission Date: 20200714
  Serious: Yes (Hospitalization)
  Sender: FDA-Public Use
  Company Number: NL-ROCHE-2624883

PATIENT
  Age: 81 Year
  Sex: Female

DRUGS (2)
  1. PERTUZUMAB. [Suspect]
     Active Substance: PERTUZUMAB
     Indication: RECTAL CANCER
     Dosage: MOST RECENT DOSE: 04/JUN/2020
     Route: 042
     Dates: start: 20200220
  2. TRASTUZUMAB. [Suspect]
     Active Substance: TRASTUZUMAB
     Indication: RECTAL CANCER
     Dosage: MOST RECENT DOSE: 04/JUN/2020
     Route: 042
     Dates: start: 20200220

REACTIONS (1)
  - Rectal obstruction [Recovered/Resolved]

NARRATIVE: CASE EVENT DATE: 20200612
